FAERS Safety Report 8400232-1 (Version None)
Quarter: 2012Q2

REPORT INFORMATION
  Report Type: 
  Country: None (occurrence: None)
  Receive Date: 20120531
  Receipt Date: 20120522
  Transmission Date: 20120825
  Serious: Yes (Hospitalization, Other)
  Sender: FDA-Public Use
  Company Number: JP-PFIZER INC-2012122818

PATIENT
  Age: 62 Year
  Sex: Female

DRUGS (4)
  1. RIFADIN [Suspect]
     Dosage: 150 MG, UNK
     Route: 048
     Dates: start: 20110816, end: 20111215
  2. ATORVASTATIN CALCIUM [Suspect]
     Dosage: 10 MG, UNK
     Dates: start: 20101028
  3. CLARITHROMYCIN [Suspect]
     Dosage: 450 MG, UNK
     Route: 048
     Dates: start: 20110816, end: 20111223
  4. ETHAMBUTOL HYDROCHLORIDE [Suspect]
     Dosage: 750 MG, UNK
     Route: 048
     Dates: start: 20110816, end: 20111223

REACTIONS (5)
  - KETOSIS [None]
  - GLYCOSYLATED HAEMOGLOBIN INCREASED [None]
  - HYPERGLYCAEMIA [None]
  - HEPATIC STEATOSIS [None]
  - MYCOBACTERIAL INFECTION [None]
